FAERS Safety Report 8409975-7 (Version None)
Quarter: 2012Q2

REPORT INFORMATION
  Report Type: 
  Country: None (occurrence: None)
  Receive Date: 20120323
  Receipt Date: 20110131
  Transmission Date: 20120825
  Serious: Yes (Other)
  Sender: FDA-Public Use
  Company Number: 163-21880-11010788

PATIENT
  Age: 65 Year
  Sex: Male
  Weight: 77 kg

DRUGS (5)
  1. ACYCLOVIR [Concomitant]
  2. AREDIA [Concomitant]
  3. REVLIMID [Suspect]
     Indication: MULTIPLE MYELOMA
     Dosage: 15 MG, EOD X 6KS, THEN 2 WKS OFF, PO; 15 MG, EACH DAY FOR 21 DAYS ON THEN 7 DAYS OFF, PO
     Route: 048
     Dates: start: 20090210
  4. DECADRON [Concomitant]
  5. BACTRIM [Concomitant]

REACTIONS (1)
  - VENOUS THROMBOSIS LIMB [None]
